FAERS Safety Report 4952413-7 (Version None)
Quarter: 2006Q1

REPORT INFORMATION
  Report Type: 
  Country: None (occurrence: None)
  Receive Date: 20060317
  Receipt Date: 20060308
  Transmission Date: 20060701
  Serious: Yes (Hospitalization)
  Sender: FDA-Public Use
  Company Number: 2005US001893

PATIENT
  Age: 42 Year
  Sex: Female
  Weight: 61.0088 kg

DRUGS (2)
  1. PROGRAF [Suspect]
     Indication: PROPHYLAXIS AGAINST TRANSPLANT REJECTION
     Dosage: 8 MG ORAL
     Route: 048
     Dates: start: 20051208
  2. PROGRAF [Suspect]
     Indication: PROPHYLAXIS AGAINST TRANSPLANT REJECTION
     Dosage: 8 MG ORAL
     Route: 048
     Dates: start: 20051210

REACTIONS (3)
  - DIARRHOEA [None]
  - PYELONEPHRITIS [None]
  - VOMITING [None]
